FAERS Safety Report 11012446 (Version 1)
Quarter: 2015Q2

REPORT INFORMATION
  Report Type: Spontaneous
  Country: US (occurrence: None)
  Receive Date: 20150410
  Receipt Date: 20150410
  Transmission Date: 20150821
  Serious: Yes (Hospitalization)
  Sender: FDA-Public Use
  Company Number: None

PATIENT
  Age: 79 Year
  Sex: Female
  Weight: 44.5 kg

DRUGS (1)
  1. CEFDINIR. [Suspect]
     Active Substance: CEFDINIR
     Indication: URINARY TRACT INFECTION
     Route: 048
     Dates: start: 20131011, end: 20131014

REACTIONS (3)
  - Swelling face [None]
  - Peripheral swelling [None]
  - Eye swelling [None]

NARRATIVE: CASE EVENT DATE: 20131013
